FAERS Safety Report 14611285 (Version 1)
Quarter: 2018Q1

REPORT INFORMATION
  Report Type: Spontaneous
  Country: ES (occurrence: ES)
  Receive Date: 20180308
  Receipt Date: 20180308
  Transmission Date: 20180509
  Serious: Yes (Life-Threatening, Hospitalization, Other)
  Sender: FDA-Public Use
  Company Number: ES-STRIDES ARCOLAB LIMITED-2018SP001591

PATIENT

DRUGS (2)
  1. AMOXICILLIN. [Concomitant]
     Active Substance: AMOXICILLIN
     Indication: OTITIS MEDIA ACUTE
     Dosage: 80 MG/KG/DAY, UNK
     Route: 065
  2. IBUPROFEN. [Suspect]
     Active Substance: IBUPROFEN
     Indication: OTITIS MEDIA ACUTE
     Dosage: UNK
     Route: 065

REACTIONS (6)
  - Tubulointerstitial nephritis [Recovered/Resolved]
  - Anuria [Recovered/Resolved]
  - Off label use [Unknown]
  - Micturition frequency decreased [Recovered/Resolved]
  - Acute kidney injury [Recovered/Resolved]
  - Pyrexia [Recovered/Resolved]
